FAERS Safety Report 4998867-1 (Version None)
Quarter: 2006Q2

REPORT INFORMATION
  Report Type: 
  Country: None (occurrence: None)
  Receive Date: 20060510
  Receipt Date: 20060118
  Transmission Date: 20061013
  Serious: Yes (Hospitalization)
  Sender: FDA-Public Use
  Company Number: US-MERCK-0601USA02217

PATIENT
  Age: 44 Year
  Sex: Female
  Weight: 77 kg

DRUGS (2)
  1. VIOXX [Suspect]
     Indication: BACK PAIN
     Route: 048
     Dates: start: 20010101
  2. VIOXX [Suspect]
     Route: 048
     Dates: start: 20010101

REACTIONS (7)
  - CHEST PAIN [None]
  - HYPOAESTHESIA FACIAL [None]
  - MENTAL DISORDER [None]
  - OVERDOSE [None]
  - PAIN [None]
  - REPRODUCTIVE TRACT DISORDER [None]
  - TRANSIENT ISCHAEMIC ATTACK [None]
